FAERS Safety Report 17291180 (Version 3)
Quarter: 2020Q1

REPORT INFORMATION
  Report Type: Spontaneous
  Country: US (occurrence: US)
  Receive Date: 20200121
  Receipt Date: 20200226
  Transmission Date: 20200409
  Serious: Yes (Life-Threatening, Hospitalization, Other)
  Sender: FDA-Public Use
  Company Number: US-HIKMA PHARMACEUTICALS USA INC.-US-H14001-20-50387

PATIENT
  Age: 46 Year
  Sex: Male

DRUGS (8)
  1. CYTARABINE. [Suspect]
     Active Substance: CYTARABINE
     Indication: CENTRAL NERVOUS SYSTEM LEUKAEMIA
     Route: 037
  2. PENICILLIN VK [Suspect]
     Active Substance: PENICILLIN V POTASSIUM
     Indication: PROPHYLAXIS
     Route: 065
  3. PREDNISONE. [Concomitant]
     Active Substance: PREDNISONE
     Indication: GRAFT VERSUS HOST DISEASE IN SKIN
     Route: 065
  4. SODIUM CHLORIDE 0.9% [Concomitant]
     Active Substance: SODIUM CHLORIDE
     Indication: PRODUCT USED FOR UNKNOWN INDICATION
     Route: 037
  5. HYDROCORTISONE. [Concomitant]
     Active Substance: HYDROCORTISONE
     Indication: CENTRAL NERVOUS SYSTEM LEUKAEMIA
     Route: 037
  6. PANTOPRAZOLE [Suspect]
     Active Substance: PANTOPRAZOLE
     Indication: PROPHYLAXIS
     Route: 065
  7. METHOTREXATE. [Suspect]
     Active Substance: METHOTREXATE
     Indication: CENTRAL NERVOUS SYSTEM LEUKAEMIA
     Route: 037
  8. TACROLIMUS. [Concomitant]
     Active Substance: TACROLIMUS
     Indication: PROPHYLAXIS AGAINST GRAFT VERSUS HOST DISEASE
     Route: 065

REACTIONS (16)
  - Encephalopathy [Recovered/Resolved]
  - Mucosal inflammation [Unknown]
  - Pancytopenia [Unknown]
  - Gastrointestinal toxicity [Unknown]
  - Unresponsive to stimuli [Recovered/Resolved]
  - Hypotension [Recovering/Resolving]
  - Nausea [Unknown]
  - Diarrhoea [Unknown]
  - Vomiting [Unknown]
  - Acute kidney injury [Unknown]
  - Neurotoxicity [Recovering/Resolving]
  - Dehydration [Unknown]
  - Respiratory failure [Recovered/Resolved]
  - Quadriplegia [Recovering/Resolving]
  - Drug level increased [Recovered/Resolved]
  - Anuria [Unknown]
